FAERS Safety Report 9524973 (Version 1)
Quarter: 2013Q3

REPORT INFORMATION
  Report Type: Spontaneous
  Country: US (occurrence: None)
  Receive Date: 20130912
  Receipt Date: 20130912
  Transmission Date: 20140515
  Serious: Yes (Disabling)
  Sender: FDA-Public Use
  Company Number: None

PATIENT
  Age: 6 Year
  Sex: Male
  Weight: 24.95 kg

DRUGS (2)
  1. SINGULAIR CHEWABLE TABLETS 5MG [Suspect]
     Indication: ASTHMA
     Route: 048
  2. SINGULAIR CHEWABLE TABLETS 5MG [Suspect]
     Indication: MULTIPLE ALLERGIES
     Route: 048

REACTIONS (8)
  - Enuresis [None]
  - Hallucinations, mixed [None]
  - Vision blurred [None]
  - Anger [None]
  - Anxiety [None]
  - Emotional disorder [None]
  - Disturbance in attention [None]
  - Middle insomnia [None]
